FAERS Safety Report 8809737 (Version 1)
Quarter: 2012Q4

REPORT INFORMATION
  Report Type: 
  Country: US (occurrence: US)
  Receive Date: 20120926
  Receipt Date: 20120926
  Transmission Date: 20130627
  Serious: Yes (Death, Other)
  Sender: FDA-Public Use
  Company Number: US-ROCHE-1127913

PATIENT
  Sex: Male

DRUGS (6)
  1. AVASTIN [Suspect]
     Indication: LUNG NEOPLASM MALIGNANT
     Route: 065
  2. ZOMETA [Concomitant]
  3. TAXOTERE [Concomitant]
  4. CARBOPLATIN [Concomitant]
  5. ERBITUX [Concomitant]
  6. GEMZAR [Concomitant]

REACTIONS (8)
  - Death [Fatal]
  - Chest pain [Unknown]
  - Pain [Unknown]
  - Fatigue [Unknown]
  - Dyspnoea [Unknown]
  - Cough [Unknown]
  - Balance disorder [Unknown]
  - Decreased appetite [Unknown]
